FAERS Safety Report 7320572-7 (Version None)
Quarter: 2011Q1

REPORT INFORMATION
  Report Type: 
  Country: None (occurrence: None)
  Receive Date: 20110228
  Receipt Date: 20110217
  Transmission Date: 20110831
  Serious: Yes (Other)
  Sender: FDA-Public Use
  Company Number: US-ROCHE-432335

PATIENT
  Sex: Female
  Weight: 71.7 kg

DRUGS (3)
  1. ACCUTANE [Suspect]
     Route: 048
     Dates: start: 20000324, end: 20000814
  2. ACCUTANE [Suspect]
     Route: 048
     Dates: start: 20000119
  3. ACCUTANE [Suspect]
     Route: 048
     Dates: start: 20000218

REACTIONS (9)
  - ALOPECIA [None]
  - INFLAMMATORY BOWEL DISEASE [None]
  - SKIN NECROSIS [None]
  - COLITIS [None]
  - BLOOD CHOLESTEROL INCREASED [None]
  - RHEUMATOID ARTHRITIS [None]
  - BLOOD TRIGLYCERIDES INCREASED [None]
  - COLITIS ULCERATIVE [None]
  - DYSPEPSIA [None]
